FAERS Safety Report 4688899-5 (Version None)
Quarter: 2005Q2

REPORT INFORMATION
  Report Type: 
  Country: None (occurrence: None)
  Receive Date: 20050610
  Receipt Date: 20050606
  Transmission Date: 20051028
  Serious: Yes (Hospitalization)
  Sender: FDA-Public Use
  Company Number: CO5-T-104

PATIENT
  Age: 72 Year
  Sex: Female

DRUGS (3)
  1. ATENOLOL [Suspect]
     Indication: HYPERTENSION
     Dosage: 25 MG QD; PO
     Route: 048
     Dates: start: 20040601, end: 20050315
  2. ATENOLOL [Suspect]
     Indication: HYPERTENSION
     Dosage: 50 MG QD; PO
     Route: 048
     Dates: start: 20050316, end: 20050601
  3. QUINAPRIL [Suspect]
     Indication: HYPERTENSION
     Dates: start: 20050401

REACTIONS (2)
  - BLOOD PRESSURE INCREASED [None]
  - COUGH [None]
